FAERS Safety Report 5140602-0 (Version None)
Quarter: 2006Q4

REPORT INFORMATION
  Report Type: 
  Country: None (occurrence: None)
  Receive Date: 20061025
  Receipt Date: 20061013
  Transmission Date: 20070319
  Serious: Yes (Hospitalization)
  Sender: FDA-Public Use
  Company Number: TCI2006A03543

PATIENT
  Age: 74 Year
  Sex: Male

DRUGS (9)
  1. ACTOS [Suspect]
     Indication: DIABETES MELLITUS
     Dosage: SEE IMAGE
     Route: 048
     Dates: start: 20000210, end: 20000222
  2. ACTOS [Suspect]
     Indication: DIABETES MELLITUS
     Dosage: SEE IMAGE
     Route: 048
     Dates: start: 20000223, end: 20030814
  3. ACTOS [Suspect]
     Indication: DIABETES MELLITUS
     Dosage: SEE IMAGE
     Route: 048
     Dates: start: 20030815, end: 20060810
  4. AMLODIPINE BESYLATE [Concomitant]
  5. GLYBURIDE [Concomitant]
  6. LAC B (LACTOBACILLUS BIFIDUS, LYOPHILIZED) [Concomitant]
  7. MAGNESIUM OXIDE [Concomitant]
  8. EXCELASE (ENZYMES NOS) [Concomitant]
  9. LENDORMIN D (BROTIZOLAM) [Concomitant]

REACTIONS (7)
  - BLOOD PRESSURE SYSTOLIC INCREASED [None]
  - DEPRESSED LEVEL OF CONSCIOUSNESS [None]
  - FALL [None]
  - HEART RATE INCREASED [None]
  - HYPERTHERMIA [None]
  - RHABDOMYOLYSIS [None]
  - URINARY INCONTINENCE [None]
